FAERS Safety Report 20150105 (Version 1)
Quarter: 2021Q4

REPORT INFORMATION
  Report Type: Spontaneous
  Country: JP (occurrence: JP)
  Receive Date: 20211206
  Receipt Date: 20211206
  Transmission Date: 20220304
  Serious: Yes (Other)
  Sender: FDA-Public Use
  Company Number: JP-ONO-2020JP005742

PATIENT
  Age: 65 Year
  Sex: Male
  Weight: 69.1 kg

DRUGS (9)
  1. PARSABIV [Suspect]
     Active Substance: ETELCALCETIDE HYDROCHLORIDE
     Indication: Hyperparathyroidism secondary
     Dosage: 5 MILLIGRAM, Q56H
     Route: 010
     Dates: start: 20190813, end: 20190909
  2. PARSABIV [Suspect]
     Active Substance: ETELCALCETIDE HYDROCHLORIDE
     Dosage: 2.5 MILLIGRAM , Q 56H
     Route: 010
     Dates: start: 20190912
  3. RENAGEL [Concomitant]
     Active Substance: SEVELAMER HYDROCHLORIDE
     Indication: Product used for unknown indication
     Dosage: 1500 MILLIGRAM, QD
     Route: 048
     Dates: end: 20210723
  4. FOSRENOL [Concomitant]
     Active Substance: LANTHANUM CARBONATE
     Indication: Product used for unknown indication
     Dosage: 2250 MG, EVERYDAY
     Route: 065
     Dates: end: 20210723
  5. OXAROL [Concomitant]
     Active Substance: MAXACALCITOL
     Indication: Product used for unknown indication
     Dosage: 5 MICROGRAM
     Route: 041
     Dates: end: 20190410
  6. OXAROL [Concomitant]
     Active Substance: MAXACALCITOL
     Dosage: 7.5 MUG, Q56H
     Route: 041
     Dates: start: 20190412, end: 20190909
  7. OXAROL [Concomitant]
     Active Substance: MAXACALCITOL
     Dosage: 5 MUG, Q56H
     Route: 041
     Dates: start: 20191029, end: 20191210
  8. OXAROL [Concomitant]
     Active Substance: MAXACALCITOL
     Dosage: 2.5 MUG, Q56H
     Route: 041
     Dates: start: 20200118, end: 20200310
  9. OXAROL [Concomitant]
     Active Substance: MAXACALCITOL
     Dosage: 5 MUG, Q56H
     Route: 041
     Dates: start: 20200312

REACTIONS (15)
  - Coronary artery stenosis [Recovered/Resolved]
  - Coronary artery stenosis [Not Recovered/Not Resolved]
  - Postoperative wound infection [Recovered/Resolved]
  - Oedema peripheral [Recovered/Resolved]
  - Skin ulcer [Recovered/Resolved]
  - Localised infection [Recovered/Resolved]
  - Peripheral arterial occlusive disease [Recovered/Resolved]
  - Fall [Unknown]
  - Contusion [Recovering/Resolving]
  - Contusion [Recovering/Resolving]
  - Skin ulcer [Recovered/Resolved]
  - Pain in jaw [Recovered/Resolved]
  - Shunt stenosis [Recovered/Resolved]
  - Shunt stenosis [Recovered/Resolved]
  - Shunt stenosis [Recovered/Resolved]

NARRATIVE: CASE EVENT DATE: 20191002
